FAERS Safety Report 7224373-X (Version None)
Quarter: 2011Q1

REPORT INFORMATION
  Report Type: 
  Country: None (occurrence: None)
  Receive Date: 20110113
  Receipt Date: 20110111
  Transmission Date: 20110831
  Serious: Yes (Hospitalization)
  Sender: FDA-Public Use
  Company Number: ES-BRISTOL-MYERS SQUIBB COMPANY-15248255

PATIENT
  Age: 63 Year
  Sex: Male
  Weight: 63 kg

DRUGS (3)
  1. CISPLATIN [Suspect]
     Indication: HEAD AND NECK CANCER
     Dosage: NO OF INF: 1
     Route: 042
     Dates: start: 20100802, end: 20100802
  2. CETUXIMAB [Suspect]
     Indication: HEAD AND NECK CANCER
     Dosage: CETUXIMAB 5MG/ML RECENT INF:09AUG2010 INTERPT ON 16AUG2010;INF:2 DURATION:7
     Route: 042
     Dates: start: 20100802, end: 20100809
  3. FLUOROURACIL [Suspect]
     Indication: HEAD AND NECK CANCER
     Dosage: CONTINOUS INF FROM DAY 1 TO DAY 4 OF CYCLE. NO OF INF: 1
     Route: 042
     Dates: start: 20100802, end: 20100802

REACTIONS (1)
  - STOMATITIS [None]
